FAERS Safety Report 7437892-8 (Version None)
Quarter: 2011Q2

REPORT INFORMATION
  Report Type: 
  Country: None (occurrence: None)
  Receive Date: 20110426
  Receipt Date: 20110420
  Transmission Date: 20111010
  Serious: Yes (Hospitalization)
  Sender: FDA-Public Use
  Company Number: B0712362A

PATIENT
  Sex: Male

DRUGS (6)
  1. CELEXA [Concomitant]
  2. CLONIDINE [Concomitant]
  3. AVANDARYL [Suspect]
     Indication: DIABETES MELLITUS
     Route: 048
     Dates: start: 20070430
  4. LEXIVA [Concomitant]
  5. NORVIR [Concomitant]
  6. EPZICOM [Concomitant]

REACTIONS (2)
  - CARDIAC FAILURE CONGESTIVE [None]
  - HYPERTENSION [None]
